FAERS Safety Report 12431545 (Version 1)
Quarter: 2016Q2

REPORT INFORMATION
  Report Type: Spontaneous
  Country: US (occurrence: None)
  Receive Date: 20160602
  Receipt Date: 20160602
  Transmission Date: 20160815
  Serious: No
  Sender: FDA-Public Use
  Company Number: None

PATIENT
  Age: 11 Month
  Sex: Male
  Weight: 8.62 kg

DRUGS (1)
  1. LITTLE REMEDIES SALINE SPRAY MEDTECH PRODUCTS INC [Suspect]
     Active Substance: SODIUM CHLORIDE
     Indication: NASAL CONGESTION
     Dosage: THRU NOSTRIL
     Route: 045
     Dates: start: 20160601, end: 20160601

REACTIONS (3)
  - Application site pain [None]
  - Product odour abnormal [None]
  - Crying [None]

NARRATIVE: CASE EVENT DATE: 20160601
